FAERS Safety Report 5287593-X (Version None)
Quarter: 2007Q1

REPORT INFORMATION
  Report Type: 
  Country: None (occurrence: None)
  Receive Date: 20070126
  Receipt Date: 20051117
  Transmission Date: 20070707
  Serious: No
  Sender: FDA-Public Use
  Company Number: 2006CT001129

PATIENT
  Age: 71 Year
  Sex: Male
  Weight: 102.5 kg

DRUGS (16)
  1. VENTAVIS [Suspect]
     Indication: PULMONARY HYPERTENSION
     Dosage: 5 UG 6XD INH
     Route: 055
     Dates: start: 20051110, end: 20051117
  2. TRACLEER [Concomitant]
  3. WARFARIN SODIUM [Concomitant]
  4. IRON [Concomitant]
  5. SYNTHROID [Concomitant]
  6. LANTUS [Concomitant]
  7. ADVAIR DISKUS 100/50 [Concomitant]
  8. IPRATROPIUM BROMIDE/SALBUTAMOL SULFATE [Concomitant]
  9. AMLODIPINE [Concomitant]
  10. LASIX [Concomitant]
  11. TYLENOL [Concomitant]
  12. MAG-OX [Concomitant]
  13. ALDACTONE [Concomitant]
  14. ZAROXOLYN [Concomitant]
  15. KLOR-CON [Concomitant]
  16. NOVOLOG [Concomitant]

REACTIONS (3)
  - ASTHENIA [None]
  - DYSPNOEA [None]
  - NO THERAPEUTIC RESPONSE [None]
